FAERS Safety Report 12564094 (Version 1)
Quarter: 2016Q3

REPORT INFORMATION
  Report Type: Spontaneous
  Country: US (occurrence: None)
  Receive Date: 20160715
  Receipt Date: 20160715
  Transmission Date: 20161109
  Serious: No
  Sender: FDA-Public Use
  Company Number: None

PATIENT
  Age: 41 Year
  Sex: Female

DRUGS (1)
  1. MIRENA [Suspect]
     Active Substance: LEVONORGESTREL

REACTIONS (10)
  - Weight increased [None]
  - Anaemia [None]
  - Back pain [None]
  - Uterine spasm [None]
  - Haemorrhage [None]
  - Alopecia [None]
  - Oedema [None]
  - Fluid retention [None]
  - Hair texture abnormal [None]
  - Secretion discharge [None]

NARRATIVE: CASE EVENT DATE: 20160701
